FAERS Safety Report 4346806-9 (Version None)
Quarter: 2004Q2

REPORT INFORMATION
  Report Type: 
  Country: None (occurrence: None)
  Receive Date: 20040426
  Receipt Date: 20031209
  Transmission Date: 20050107
  Serious: Yes (Hospitalization)
  Sender: FDA-Public Use
  Company Number: US-MERCK-0312USA00991

PATIENT
  Age: 52 Year
  Sex: Female
  Weight: 72 kg

DRUGS (29)
  1. PLAVIX [Concomitant]
     Indication: ANTIPLATELET THERAPY
     Route: 065
     Dates: start: 20020101
  2. CYCLOBENZAPRINE HYDROCHLORIDE [Concomitant]
     Indication: PAIN
     Route: 065
     Dates: start: 19980601
  3. VALIUM [Concomitant]
     Indication: ANXIETY
     Route: 065
     Dates: start: 20020101
  4. VALIUM [Concomitant]
     Route: 065
     Dates: end: 20011201
  5. BENADRYL [Concomitant]
     Indication: SLEEP DISORDER
     Route: 065
     Dates: start: 19941101
  6. PREMPRO [Concomitant]
     Indication: HORMONE REPLACEMENT THERAPY
     Route: 065
     Dates: start: 20020201, end: 20020501
  7. ADVAIR DISKUS 100/50 [Concomitant]
     Route: 065
     Dates: start: 20020101
  8. PROLEX DH [Concomitant]
     Route: 065
  9. HYDROCODONE HYDROCHLORIDE [Concomitant]
     Indication: PAIN
     Route: 065
     Dates: start: 19991001, end: 20020701
  10. MOTRIN [Concomitant]
     Indication: PAIN
     Route: 065
     Dates: start: 19980901, end: 19981001
  11. MOTRIN [Concomitant]
     Route: 065
  12. TOPROL-XL [Concomitant]
     Indication: HYPERTENSION
     Route: 065
     Dates: start: 20011101, end: 20011201
  13. DAYPRO [Concomitant]
     Indication: PAIN
     Route: 065
     Dates: start: 19930901
  14. VIOXX [Suspect]
     Indication: BACK PAIN
     Route: 048
     Dates: start: 20010107, end: 20020401
  15. VIOXX [Suspect]
     Route: 048
  16. VIOXX [Suspect]
     Indication: ARTHRITIS
     Route: 048
     Dates: start: 20010107, end: 20020401
  17. VIOXX [Suspect]
     Route: 048
  18. MICARDIS [Concomitant]
     Indication: HYPERTENSION
     Route: 065
     Dates: start: 20011101, end: 20011201
  19. DETROL [Concomitant]
     Indication: URINARY INCONTINENCE
     Route: 065
     Dates: start: 19991201
  20. MAVIK [Concomitant]
     Indication: HYPERTENSION
     Route: 065
     Dates: start: 20020101
  21. LORCET-HD [Concomitant]
     Indication: PAIN
     Route: 065
     Dates: start: 19930901
  22. COMBIVENT [Concomitant]
     Route: 065
     Dates: start: 20020101
  23. ASPIRIN [Concomitant]
     Indication: PROPHYLAXIS
     Route: 065
     Dates: start: 20020101
  24. LIPITOR [Concomitant]
     Indication: BLOOD CHOLESTEROL INCREASED
     Route: 065
     Dates: start: 20020101
  25. RHINOCORT [Concomitant]
     Indication: RHINITIS ALLERGIC
     Route: 065
     Dates: start: 20010701, end: 20020701
  26. WELLBUTRIN [Concomitant]
     Indication: EX-SMOKER
     Route: 065
     Dates: start: 19940601
  27. COREG [Concomitant]
     Indication: HYPERTENSION
     Route: 065
     Dates: start: 20020101
  28. TAGAMET [Concomitant]
     Indication: ULCER
     Route: 065
     Dates: start: 19930101
  29. BIAXIN [Concomitant]
     Route: 065

REACTIONS (21)
  - ACUTE MYOCARDIAL INFARCTION [None]
  - ANAEMIA [None]
  - BLOOD CHOLESTEROL INCREASED [None]
  - BLOOD PRESSURE INCREASED [None]
  - CARDIAC FAILURE CONGESTIVE [None]
  - CHRONIC OBSTRUCTIVE AIRWAYS DISEASE [None]
  - CORONARY ARTERY DISEASE [None]
  - DIZZINESS [None]
  - HEPATIC ENZYME INCREASED [None]
  - HYPERTENSIVE CARDIOMYOPATHY [None]
  - HYPERTENSIVE HEART DISEASE [None]
  - HYPOKALAEMIA [None]
  - HYPOXIA [None]
  - INSOMNIA [None]
  - MYOCARDIAL INFARCTION [None]
  - PALPITATIONS [None]
  - PULMONARY OEDEMA [None]
  - RESPIRATORY FAILURE [None]
  - SYNCOPE [None]
  - SYNCOPE VASOVAGAL [None]
  - VENTRICULAR HYPERTROPHY [None]
